FAERS Safety Report 23836266 (Version 2)
Quarter: 2024Q2

REPORT INFORMATION
  Report Type: Spontaneous
  Country: US (occurrence: US)
  Receive Date: 20240509
  Receipt Date: 20240523
  Transmission Date: 20240716
  Serious: No
  Sender: FDA-Public Use
  Company Number: US-PFIZER INC-PV202400024733

PATIENT
  Age: 76 Year
  Sex: Female

DRUGS (4)
  1. IBRANCE [Suspect]
     Active Substance: PALBOCICLIB
     Indication: Breast cancer metastatic
     Dosage: 125 MG (1 TABLET (125 MG TOTAL) BY MOUTH DAILY FOLLOWED BY 7 DAYS OFF, REPEAT EVERY 28 DAYS)
     Route: 048
     Dates: start: 20231228
  2. IBRANCE [Suspect]
     Active Substance: PALBOCICLIB
     Dosage: 100 MG (1 TABLET (100 MG TOTAL) BY MOUTH DAILY FOLLOWED BY 7 DAYS OFF, REPEAT EVERY 28 DAYS)
     Route: 048
     Dates: start: 20240220
  3. IBRANCE [Suspect]
     Active Substance: PALBOCICLIB
     Dosage: TAKE 1 TABLET (75 MG TOTAL) DAILY FOLLOWED BY 7 DAYS OFF, REPEAT EVERY 28 DAYS
     Route: 048
  4. LETROZOLE [Concomitant]
     Active Substance: LETROZOLE
     Dosage: UNK

REACTIONS (1)
  - White blood cell count decreased [Unknown]
